FAERS Safety Report 6318478-5 (Version None)
Quarter: 2009Q3

REPORT INFORMATION
  Report Type: 
  Country: None (occurrence: None)
  Receive Date: 20090821
  Receipt Date: 20090817
  Transmission Date: 20100115
  Serious: Yes (Hospitalization)
  Sender: FDA-Public Use
  Company Number: KR-BRISTOL-MYERS SQUIBB COMPANY-14578470

PATIENT
  Age: 65 Year
  Sex: Male
  Weight: 66 kg

DRUGS (3)
  1. CETUXIMAB [Suspect]
     Indication: GASTROOESOPHAGEAL CANCER
     Dosage: STRENGTH: 5MG/ML TEMP WITH DRAWN ON 19MAR09.
     Route: 042
     Dates: start: 20090219
  2. CISPLATIN [Suspect]
     Indication: GASTROOESOPHAGEAL CANCER
     Dosage: TAKEN ON DAY1 OF CYCLE
     Route: 042
     Dates: start: 20090219, end: 20090219
  3. CAPECITABINE [Suspect]
     Indication: GASTROOESOPHAGEAL CANCER
     Dosage: TAKEN ON DAY 1-15 FORMULATION - TABLETS
     Route: 048
     Dates: start: 20090219, end: 20090305

REACTIONS (1)
  - ASPARTATE AMINOTRANSFERASE INCREASED [None]
